FAERS Safety Report 4427255-1 (Version None)
Quarter: 2004Q3

REPORT INFORMATION
  Report Type: 
  Country: None (occurrence: None)
  Receive Date: 20040817
  Receipt Date: 20040729
  Transmission Date: 20050211
  Serious: Yes (Other)
  Sender: FDA-Public Use
  Company Number: 200415776US

PATIENT
  Sex: Male

DRUGS (1)
  1. ALLEGRA [Suspect]
     Dosage: DOSE: UNK

REACTIONS (2)
  - BLINDNESS [None]
  - INTRAOCULAR PRESSURE INCREASED [None]
